FAERS Safety Report 17774237 (Version 1)
Quarter: 2020Q2

REPORT INFORMATION
  Report Type: Spontaneous
  Country: JP (occurrence: JP)
  Receive Date: 20200513
  Receipt Date: 20200513
  Transmission Date: 20200714
  Serious: Yes (Other)
  Sender: FDA-Public Use
  Company Number: ALC2019JP004467

PATIENT
  Age: 27 Year
  Sex: Female

DRUGS (1)
  1. KETOTIFEN HYDROGEN FUMARATE [Suspect]
     Active Substance: KETOTIFEN FUMARATE
     Indication: PRODUCT USED FOR UNKNOWN INDICATION
     Route: 047

REACTIONS (1)
  - Epilepsy [Unknown]
